FAERS Safety Report 5811071-X (Version None)
Quarter: 2008Q3

REPORT INFORMATION
  Report Type: 
  Country: None (occurrence: None)
  Receive Date: 20080716
  Receipt Date: 20080707
  Transmission Date: 20090109
  Serious: Yes (Hospitalization, Other)
  Sender: FDA-Public Use
  Company Number: SE-JNJFOC-20080701697

PATIENT
  Age: 65 Year
  Sex: Female

DRUGS (6)
  1. REMICADE [Suspect]
     Indication: RHEUMATOID ARTHRITIS
     Route: 042
  2. OPTINATE SEPTIMUM [Concomitant]
     Route: 048
  3. FOLACIN [Concomitant]
     Route: 048
  4. BEHEPAN [Concomitant]
     Route: 048
  5. METHOTREXATE [Concomitant]
     Route: 048
  6. CALCICHEW-D3 [Concomitant]
     Dosage: 500 MG/ 400 IE
     Route: 048

REACTIONS (1)
  - LIP AND/OR ORAL CAVITY CANCER [None]
